FAERS Safety Report 7500763-2 (Version None)
Quarter: 2011Q2

REPORT INFORMATION
  Report Type: 
  Country: None (occurrence: None)
  Receive Date: 20110524
  Receipt Date: 20110517
  Transmission Date: 20111010
  Serious: Yes (Death)
  Sender: FDA-Public Use
  Company Number: BR-MEDIMMUNE-MEDI-0013208

PATIENT
  Sex: Male
  Weight: 9 kg

DRUGS (3)
  1. SYNAGIS [Suspect]
     Indication: CARDIAC DISORDER
     Route: 030
     Dates: start: 20100501
  2. CARVEDILOL [Concomitant]
     Route: 048
     Dates: start: 20091002, end: 20110428
  3. FUROSEMIDE [Concomitant]
     Indication: DIURETIC THERAPY
     Route: 048
     Dates: start: 20091002, end: 20110428

REACTIONS (1)
  - CARDIAC FAILURE [None]
